FAERS Safety Report 5427609-0 (Version None)
Quarter: 2007Q3

REPORT INFORMATION
  Report Type: 
  Country: None (occurrence: None)
  Receive Date: 20070828
  Receipt Date: 20070813
  Transmission Date: 20080115
  Serious: Yes (Death, Other)
  Sender: FDA-Public Use
  Company Number: CA-ELI_LILLY_AND_COMPANY-CA200706001401

PATIENT
  Age: 87 Year
  Sex: Female

DRUGS (4)
  1. EVISTA [Suspect]
     Indication: OSTEOPOROSIS
  2. VITAMIN D [Concomitant]
     Dosage: UNK, UNK
  3. CALCIUM W/VITAMIN D NOS [Concomitant]
  4. FOSAMAX [Concomitant]
     Dates: start: 20000201, end: 20060705

REACTIONS (11)
  - BLOOD ALKALINE PHOSPHATASE INCREASED [None]
  - BREAST CANCER [None]
  - CARDIAC FAILURE CONGESTIVE [None]
  - HAEMATOCRIT DECREASED [None]
  - LUNG NEOPLASM MALIGNANT [None]
  - METASTATIC SQUAMOUS CELL CARCINOMA [None]
  - NEOPLASM MALIGNANT [None]
  - PNEUMONIA [None]
  - TROPONIN INCREASED [None]
  - URINE OUTPUT DECREASED [None]
  - VITAMIN D INCREASED [None]
